FAERS Safety Report 16873909 (Version 1)
Quarter: 2019Q4

REPORT INFORMATION
  Report Type: Spontaneous
  Country: US (occurrence: US)
  Receive Date: 20191001
  Receipt Date: 20191001
  Transmission Date: 20200122
  Serious: Yes (Life-Threatening)
  Sender: FDA-Public Use
  Company Number: US-PFIZER INC-2019400914

PATIENT
  Sex: Female

DRUGS (1)
  1. PREPARATION H TOTABLES IRRITATION RELIEF WIPES [Suspect]
     Active Substance: WITCH HAZEL
     Dosage: USES THE PRODUCT EVERYDAY

REACTIONS (1)
  - Malaise [Unknown]
